FAERS Safety Report 5778395-6 (Version None)
Quarter: 2008Q2

REPORT INFORMATION
  Report Type: 
  Country: None (occurrence: None)
  Receive Date: 20080619
  Receipt Date: 20080609
  Transmission Date: 20081010
  Serious: Yes (Other)
  Sender: FDA-Public Use
  Company Number: US-TEVA-172691USA

PATIENT
  Age: 56 Year
  Sex: Female

DRUGS (3)
  1. IDARUBICIN HCL, INJECTION, 20MG/ML, 10 MG/ML, 5MG/ML [Suspect]
     Indication: ACUTE MYELOID LEUKAEMIA
  2. CYTARABINE [Suspect]
     Indication: ACUTE MYELOID LEUKAEMIA
     Dosage: 3 G/M2
  3. GRANULOCYTE MACROPHAGE COLONY STIM FACTOR [Suspect]
     Indication: ACUTE MYELOID LEUKAEMIA

REACTIONS (1)
  - MYELODYSPLASTIC SYNDROME [None]
